FAERS Safety Report 7305066-7 (Version None)
Quarter: 2011Q1

REPORT INFORMATION
  Report Type: 
  Country: None (occurrence: None)
  Receive Date: 20110222
  Receipt Date: 20110126
  Transmission Date: 20110831
  Serious: No
  Sender: FDA-Public Use
  Company Number: US-B.I. PHARMACEUTICALS,INC./RIDGEFIELD-2010-BP-14796BP

PATIENT
  Age: 71 Year
  Sex: Male

DRUGS (6)
  1. PRADAXA [Suspect]
     Dates: start: 20101111
  2. ALLEGRA [Concomitant]
     Dosage: 180 MG
  3. CRESTOR [Concomitant]
     Dosage: 40 MG
  4. COREG [Concomitant]
     Dosage: 6.25 MG
  5. NIASPAN [Concomitant]
     Dosage: 1000 MG
  6. NEXIUM [Concomitant]
     Dosage: 40 MG

REACTIONS (2)
  - NAUSEA [None]
  - ARTHRALGIA [None]
